FAERS Safety Report 6970483-1 (Version None)
Quarter: 2010Q3

REPORT INFORMATION
  Report Type: 
  Country: None (occurrence: None)
  Receive Date: 20100903
  Receipt Date: 20100820
  Transmission Date: 20110219
  Serious: Yes (Other)
  Sender: FDA-Public Use
  Company Number: IPC201009-000252

PATIENT
  Age: 86 Year
  Sex: Female

DRUGS (11)
  1. METFORMIN HCL [Suspect]
     Indication: DIABETES MELLITUS
     Dosage: 500 MG ONCE A DAY
  2. PANTOPRAZOLE [Suspect]
     Indication: GASTROINTESTINAL HAEMORRHAGE
     Dosage: 40 MG, OD, ORAL, WAS CUTTING THE TABLET IN HALF, ORAL
     Route: 048
     Dates: start: 20080101, end: 20091101
  3. PANTOPRAZOLE [Suspect]
     Indication: OESOPHAGEAL DISORDER
     Dosage: 40 MG, OD, ORAL, WAS CUTTING THE TABLET IN HALF, ORAL
     Route: 048
     Dates: start: 20080101, end: 20091101
  4. PANTOPRAZOLE [Suspect]
     Indication: GASTROINTESTINAL HAEMORRHAGE
     Dosage: 40 MG, OD, ORAL, WAS CUTTING THE TABLET IN HALF, ORAL
     Route: 048
     Dates: start: 20091101
  5. PANTOPRAZOLE [Suspect]
     Indication: OESOPHAGEAL DISORDER
     Dosage: 40 MG, OD, ORAL, WAS CUTTING THE TABLET IN HALF, ORAL
     Route: 048
     Dates: start: 20091101
  6. GLIBENCLAMIDE [Suspect]
     Indication: DIABETES MELLITUS
     Dosage: 5 MG, 1 IN 1 DAY, (2.5 MG, 1 IN 1 DAY), (10 MG, 2 IN 1 DAY), (5 MG, 1 IN 1 DAY)
     Dates: end: 20100401
  7. AZITHROMYCIN [Suspect]
  8. NORVASC [Concomitant]
  9. BENICAR (OLMESARTARN MEDOXOMIL) [Concomitant]
  10. VITAMINS [Concomitant]
  11. IRON [Concomitant]

REACTIONS (9)
  - BLOOD GLUCOSE FLUCTUATION [None]
  - BODY TEMPERATURE INCREASED [None]
  - CHRONIC MYELOID LEUKAEMIA [None]
  - CONDITION AGGRAVATED [None]
  - DIABETES MELLITUS [None]
  - GENERAL PHYSICAL HEALTH DETERIORATION [None]
  - INCORRECT DRUG ADMINISTRATION DURATION [None]
  - UMBILICAL HERNIA [None]
  - WRONG TECHNIQUE IN DRUG USAGE PROCESS [None]
